FAERS Safety Report 14739641 (Version 3)
Quarter: 2018Q4

REPORT INFORMATION
  Report Type: Report from Study
  Country: JP (occurrence: JP)
  Receive Date: 20180410
  Receipt Date: 20181228
  Transmission Date: 20190204
  Serious: Yes (Hospitalization, Other)
  Sender: FDA-Public Use
  Company Number: JP-ACTELION-A-CH2017-159273

PATIENT
  Age: 75 Year
  Sex: Female
  Weight: 50.8 kg

DRUGS (15)
  1. OPSUMIT [Suspect]
     Active Substance: MACITENTAN
     Indication: PULMONARY ARTERIAL HYPERTENSION
     Dosage: 10 MG, QD
     Route: 048
     Dates: start: 20151216, end: 20170129
  2. MUCOSTA [Concomitant]
     Active Substance: REBAMIPIDE
  3. NEXIUM [Concomitant]
     Active Substance: ESOMEPRAZOLE MAGNESIUM
  4. ELIQUIS [Suspect]
     Active Substance: APIXABAN
     Indication: ATRIAL FIBRILLATION
     Dosage: 2.5 MG, BID
     Route: 048
  5. AZILVA [Concomitant]
     Active Substance: AZILSARTAN KAMEDOXOMIL
  6. LASIX [Concomitant]
     Active Substance: FUROSEMIDE
  7. ADALAT [Concomitant]
     Active Substance: NIFEDIPINE
  8. NESINA [Concomitant]
     Active Substance: ALOGLIPTIN BENZOATE
  9. PREGABALIN. [Concomitant]
     Active Substance: PREGABALIN
  10. BAYASPIRIN [Suspect]
     Active Substance: ASPIRIN
     Indication: ANGINA PECTORIS
     Dosage: 100 MG, QD
     Route: 048
  11. LENDORMIN [Concomitant]
     Active Substance: BROTIZOLAM
  12. LANIRAPID [Concomitant]
     Active Substance: METILDIGOXIN
  13. DIART [Concomitant]
     Active Substance: AZOSEMIDE
  14. SAMSCA [Concomitant]
     Active Substance: TOLVAPTAN
  15. FERROMIA [Concomitant]
     Active Substance: SODIUM FERROUS CITRATE

REACTIONS (10)
  - Platelet count decreased [Recovered/Resolved]
  - Pulmonary congestion [Recovering/Resolving]
  - Post herpetic neuralgia [Recovering/Resolving]
  - Back pain [Recovering/Resolving]
  - Neuralgia [Recovering/Resolving]
  - Cardiac failure congestive [Recovering/Resolving]
  - Dyspnoea [Recovering/Resolving]
  - Spinal column stenosis [Recovering/Resolving]
  - Iron deficiency anaemia [Recovering/Resolving]
  - Cardiac failure chronic [Recovering/Resolving]

NARRATIVE: CASE EVENT DATE: 20160404
